FAERS Safety Report 22115688 (Version 1)
Quarter: 2023Q1

REPORT INFORMATION
  Report Type: Spontaneous
  Country: US (occurrence: None)
  Receive Date: 20230320
  Receipt Date: 20230320
  Transmission Date: 20230417
  Serious: Yes (Hospitalization)
  Sender: FDA-Public Use
  Company Number: None

PATIENT
  Sex: Female

DRUGS (1)
  1. FASENRA [Suspect]
     Active Substance: BENRALIZUMAB
     Indication: Product used for unknown indication
     Dosage: OTHER FREQUENCY : EVERY 56 DAYS;?
     Route: 058
     Dates: start: 202202

REACTIONS (2)
  - Chronic obstructive pulmonary disease [None]
  - Therapy cessation [None]
